FAERS Safety Report 7032770-0 (Version None)
Quarter: 2010Q4

REPORT INFORMATION
  Report Type: 
  Country: None (occurrence: None)
  Receive Date: 20101007
  Receipt Date: 20100924
  Transmission Date: 20110411
  Serious: Yes (Other)
  Sender: FDA-Public Use
  Company Number: US-PFIZER INC-2010122564

PATIENT
  Sex: Female
  Weight: 63.49 kg

DRUGS (3)
  1. LYRICA [Suspect]
     Indication: ANXIETY
     Dosage: 75 MG, 2X/DAY
     Route: 048
     Dates: start: 20100923
  2. LYRICA [Suspect]
     Indication: DEPRESSION
  3. METHADONE [Concomitant]
     Indication: DRUG DEPENDENCE
     Dosage: UNK
     Dates: start: 20100921, end: 20100921

REACTIONS (5)
  - FEELING ABNORMAL [None]
  - FEELING COLD [None]
  - MIOSIS [None]
  - SOMNOLENCE [None]
  - SPEECH DISORDER [None]
